FAERS Safety Report 10342916 (Version 1)
Quarter: 2014Q3

REPORT INFORMATION
  Report Type: Spontaneous
  Country: FR (occurrence: None)
  Receive Date: 20140723
  Receipt Date: 20140723
  Transmission Date: 20150326
  Serious: Yes (Other)
  Sender: FDA-Public Use
  Company Number: 2014AJA00024

PATIENT

DRUGS (1)
  1. RISPERIDONE. [Suspect]
     Active Substance: RISPERIDONE
     Indication: PSYCHOTIC DISORDER
     Route: 048

REACTIONS (8)
  - Impulsive behaviour [None]
  - Stupor [None]
  - Waxy flexibility [None]
  - Echolalia [None]
  - Mutism [None]
  - Staring [None]
  - Muscle rigidity [None]
  - Catatonia [None]

NARRATIVE: CASE EVENT DATE: 20140613
